FAERS Safety Report 7921328-4 (Version None)
Quarter: 2011Q4

REPORT INFORMATION
  Report Type: 
  Country: None (occurrence: None)
  Receive Date: 20111117
  Receipt Date: 20111107
  Transmission Date: 20120403
  Serious: Yes (Hospitalization, Other)
  Sender: FDA-Public Use
  Company Number: US-BAYER-201040554NA

PATIENT
  Age: 31 Year
  Sex: Female
  Weight: 91 kg

DRUGS (8)
  1. PROZAC [Concomitant]
     Indication: MENTAL DISORDER
     Dosage: UNK
     Route: 048
     Dates: start: 20090101, end: 20100101
  2. WELLBUTRIN [Concomitant]
     Indication: MENTAL DISORDER
     Dosage: UNK
     Route: 048
     Dates: start: 20090101, end: 20100101
  3. TRESIDIUM [Concomitant]
     Indication: MENTAL DISORDER
     Dosage: UNK
     Route: 048
     Dates: start: 20090101, end: 20100101
  4. LITHIUM [Concomitant]
  5. NEXIUM [Concomitant]
  6. TRAZODONE HCL [Concomitant]
     Dosage: 100 MG, UNK
     Route: 048
     Dates: start: 20091006
  7. LITHOUR [Concomitant]
     Indication: MENTAL DISORDER
     Dosage: UNK
     Route: 048
     Dates: start: 20090101, end: 20100101
  8. YAZ [Suspect]
     Indication: CONTRACEPTION
     Dosage: UNK
     Route: 048
     Dates: start: 20080101, end: 20081101

REACTIONS (4)
  - GALLBLADDER DISORDER [None]
  - HERNIA [None]
  - CHOLECYSTITIS ACUTE [None]
  - PAIN [None]
